FAERS Safety Report 5581553-7 (Version None)
Quarter: 2008Q1

REPORT INFORMATION
  Report Type: 
  Country: None (occurrence: None)
  Receive Date: 20080102
  Receipt Date: 20080102
  Transmission Date: 20080703
  Serious: No
  Sender: FDA-Public Use
  Company Number: None

PATIENT
  Age: 38 Year
  Sex: Female
  Weight: 70.3075 kg

DRUGS (1)
  1. TOPAMAX [Suspect]
     Indication: MIGRAINE
     Dosage: 25MG 1 DAILEY PO
     Route: 048
     Dates: start: 20071030, end: 20071107

REACTIONS (8)
  - EYE DISCHARGE [None]
  - EYE PAIN [None]
  - FATIGUE [None]
  - FEAR [None]
  - MIGRAINE [None]
  - OCULAR DISCOMFORT [None]
  - OCULAR HYPERAEMIA [None]
  - VISION BLURRED [None]
